FAERS Safety Report 18155796 (Version 4)
Quarter: 2020Q4

REPORT INFORMATION
  Report Type: Spontaneous
  Country: US (occurrence: US)
  Receive Date: 20200817
  Receipt Date: 20201105
  Transmission Date: 20210113
  Serious: Yes (Other)
  Sender: FDA-Public Use
  Company Number: US-SA-2020SA214047

PATIENT

DRUGS (1)
  1. DUPIXENT [Suspect]
     Active Substance: DUPILUMAB
     Indication: DERMATITIS ATOPIC
     Dosage: 300 MG, QOW
     Route: 058
     Dates: start: 20200630, end: 2020

REACTIONS (9)
  - Pruritus [Not Recovered/Not Resolved]
  - Cataract [Unknown]
  - Dry skin [Unknown]
  - Rash [Not Recovered/Not Resolved]
  - Drug ineffective [Not Recovered/Not Resolved]
  - Rash pruritic [Unknown]
  - Skin texture abnormal [Unknown]
  - Skin exfoliation [Unknown]
  - Erythema [Unknown]

NARRATIVE: CASE EVENT DATE: 2020
